FAERS Safety Report 21027078 (Version 1)
Quarter: 2022Q2

REPORT INFORMATION
  Report Type: Spontaneous
  Country: IR (occurrence: None)
  Receive Date: 20220629
  Receipt Date: 20220629
  Transmission Date: 20220721
  Serious: Yes (Life-Threatening, Disabling, Other)
  Sender: FDA-Public Use
  Company Number: None

PATIENT
  Age: 16 Year
  Sex: Male
  Weight: 85 kg

DRUGS (2)
  1. HALOPERIDOL [Suspect]
     Active Substance: HALOPERIDOL
  2. FLUVOXAMINE [Suspect]
     Active Substance: FLUVOXAMINE

REACTIONS (8)
  - Somnolence [None]
  - Headache [None]
  - Dizziness [None]
  - Back pain [None]
  - Pain [None]
  - Feeling abnormal [None]
  - Impaired quality of life [None]
  - Nightmare [None]

NARRATIVE: CASE EVENT DATE: 20160609
